FAERS Safety Report 4565512-9 (Version None)
Quarter: 2005Q1

REPORT INFORMATION
  Report Type: 
  Country: None (occurrence: None)
  Receive Date: 20050131
  Receipt Date: 20040921
  Transmission Date: 20050727
  Serious: Yes (Hospitalization, Other)
  Sender: FDA-Public Use
  Company Number: 2004JP001710

PATIENT
  Age: 57 Year
  Sex: Female
  Weight: 34 kg

DRUGS (4)
  1. CEFAMEZIN [Suspect]
     Dosage: 1G PER DAY
     Route: 065
     Dates: start: 20040802, end: 20040813
  2. ATARAX [Concomitant]
     Dates: start: 20040721
  3. ALESION [Concomitant]
     Dates: start: 20040723
  4. ROHYPNOL [Concomitant]
     Dates: start: 20040723

REACTIONS (1)
  - LEUKOPENIA [None]
